FAERS Safety Report 11462009 (Version 1)
Quarter: 2015Q3

REPORT INFORMATION
  Report Type: Spontaneous
  Country: US (occurrence: US)
  Receive Date: 20150831
  Receipt Date: 20150831
  Transmission Date: 20151125
  Serious: Yes (Hospitalization, Other)
  Sender: FDA-Public Use
  Company Number: US-ELI_LILLY_AND_COMPANY-US201007002070

PATIENT
  Age: 57 Year
  Sex: Male

DRUGS (8)
  1. TRILEPTAL [Concomitant]
     Active Substance: OXCARBAZEPINE
  2. SEROQUEL [Concomitant]
     Active Substance: QUETIAPINE FUMARATE
     Dosage: 300 MG, UNK
     Dates: start: 20071119
  3. CYMBALTA [Suspect]
     Active Substance: DULOXETINE HYDROCHLORIDE
     Indication: DIABETIC NEUROPATHY
     Dosage: 60 MG, 2/D
     Dates: start: 20060914, end: 20100902
  4. SEROQUEL [Concomitant]
     Active Substance: QUETIAPINE FUMARATE
     Dosage: 400 MG, UNK
  5. AMBIEN CR [Concomitant]
     Active Substance: ZOLPIDEM TARTRATE
     Dosage: 18.75 MG, UNK
     Dates: start: 20070321
  6. MOTRIN [Concomitant]
     Active Substance: IBUPROFEN
     Indication: NEURALGIA
  7. LAMICTAL                                /SCH/ [Concomitant]
     Dosage: 400 MG, UNK
     Dates: start: 20060822
  8. VYVANSE [Concomitant]
     Active Substance: LISDEXAMFETAMINE DIMESYLATE
     Dosage: 50 MG, UNK
     Dates: start: 20081119

REACTIONS (2)
  - Haemorrhage [Recovered/Resolved]
  - Drug ineffective [Unknown]
